FAERS Safety Report 25140846 (Version 5)
Quarter: 2025Q2

REPORT INFORMATION
  Report Type: Spontaneous
  Country: US (occurrence: US)
  Receive Date: 20250331
  Receipt Date: 20250521
  Transmission Date: 20250717
  Serious: Yes (Other)
  Sender: PFIZER
  Company Number: US-PFIZER INC-202500067356

PATIENT
  Age: 16 Year
  Sex: Male
  Weight: 63.5 kg

DRUGS (1)
  1. GENOTROPIN [Suspect]
     Active Substance: SOMATROPIN
     Indication: Growth hormone deficiency
     Dosage: 3.6 MG, DAILY

REACTIONS (6)
  - Device delivery system issue [Unknown]
  - Device issue [Unknown]
  - Device breakage [Unknown]
  - Device malfunction [Unknown]
  - Extra dose administered [Unknown]
  - Drug dose omission by device [Unknown]
